FAERS Safety Report 21177610 (Version 2)
Quarter: 2022Q3

REPORT INFORMATION
  Report Type: Spontaneous
  Country: GR (occurrence: GR)
  Receive Date: 20220805
  Receipt Date: 20220817
  Transmission Date: 20221026
  Serious: Yes (Hospitalization)
  Sender: FDA-Public Use
  Company Number: GR-TEVA-2022-GR-2060160

PATIENT
  Age: 45 Year
  Sex: Female

DRUGS (2)
  1. CINACALCET [Suspect]
     Active Substance: CINACALCET
     Indication: Calciphylaxis
     Route: 065
  2. SODIUM THIOSULFATE [Suspect]
     Active Substance: SODIUM THIOSULFATE
     Indication: Calciphylaxis
     Route: 042

REACTIONS (6)
  - Metabolic acidosis [Unknown]
  - Nausea [Unknown]
  - Vomiting [Unknown]
  - Drug ineffective for unapproved indication [Unknown]
  - Off label use [Unknown]
  - Drug ineffective [Unknown]
